FAERS Safety Report 6026901-9 (Version None)
Quarter: 2009Q1

REPORT INFORMATION
  Report Type: 
  Country: None (occurrence: None)
  Receive Date: 20090105
  Receipt Date: 20081226
  Transmission Date: 20090719
  Serious: Yes (Hospitalization, Other)
  Sender: FDA-Public Use
  Company Number: US-BIOGENIDEC-2008BI030063

PATIENT
  Sex: Female

DRUGS (1)
  1. AVONEX [Suspect]
     Indication: MULTIPLE SCLEROSIS
     Route: 030
     Dates: start: 20070514, end: 20081101

REACTIONS (5)
  - BLADDER DISORDER [None]
  - BREAST HYPERPLASIA [None]
  - FAECES DISCOLOURED [None]
  - FIBROCYSTIC BREAST DISEASE [None]
  - PRECANCEROUS CELLS PRESENT [None]
